FAERS Safety Report 9454589 (Version 1)
Quarter: 2013Q3

REPORT INFORMATION
  Report Type: Spontaneous
  Country: US (occurrence: None)
  Receive Date: 20130808
  Receipt Date: 20130808
  Transmission Date: 20140515
  Serious: Yes (Other)
  Sender: FDA-Public Use
  Company Number: IPC201307-000307

PATIENT
  Age: 89 Year
  Sex: Female

DRUGS (8)
  1. SPIRONOLACTONE [Suspect]
     Route: 048
     Dates: start: 20081015
  2. HCTZ -OLMESARTAN (HYDROCHLORTHIAZIDE, OLMESARTAN MEDOXOMIL) 9HYDROCHLORTHIAZIDE, OLMESARTAN MEDOXOMIL) [Suspect]
  3. METOPROLOL TARTRATE [Suspect]
     Indication: HYPERTENSION
     Route: 048
     Dates: start: 20080227
  4. AMLODIPINE BESILATE [Suspect]
     Indication: HYPERTENSION
     Dosage: 10 MG ONCE DAILY ORAL,30-AUG-2006 TO ONGOING.
  5. ATORVASTATIN [Suspect]
     Route: 048
     Dates: start: 20050504
  6. FOSINOPRIL [Suspect]
     Route: 048
     Dates: start: 20060726
  7. GLIPIZIDE [Suspect]
     Route: 048
     Dates: start: 20070117
  8. DOXAZOSIN [Suspect]
     Indication: HYPERTENSION
     Dosage: 8 MG, ONCE DAILY, ORAL, 16/6/2006,  STOPPED.

REACTIONS (6)
  - Hyperkalaemia [None]
  - Orthostatic hypotension [None]
  - Renal failure [None]
  - Fatigue [None]
  - Hypotension [None]
  - Polymedication [None]
